FAERS Safety Report 8587283-1 (Version None)
Quarter: 2012Q3

REPORT INFORMATION
  Report Type: 
  Country: None (occurrence: None)
  Receive Date: 20120810
  Receipt Date: 20120314
  Transmission Date: 20120928
  Serious: No
  Sender: FDA-Public Use
  Company Number: US-ASTRAZENECA-2012SE17764

PATIENT
  Age: 77 Year
  Sex: Male

DRUGS (2)
  1. LEVOTHYROXINE SODIUM [Concomitant]
  2. ARIMIDEX [Suspect]
     Route: 048

REACTIONS (4)
  - VISION BLURRED [None]
  - PAIN OF SKIN [None]
  - ALOPECIA [None]
  - OFF LABEL USE [None]
